FAERS Safety Report 4870749-5 (Version None)
Quarter: 2005Q4

REPORT INFORMATION
  Report Type: 
  Country: None (occurrence: None)
  Receive Date: 20051229
  Receipt Date: 20051216
  Transmission Date: 20060501
  Serious: Yes (Hospitalization)
  Sender: FDA-Public Use
  Company Number: 2005BH002999

PATIENT
  Age: 52 Year
  Sex: Male
  Weight: 69 kg

DRUGS (20)
  1. EXTRANEAL [Suspect]
     Indication: PERITONEAL DIALYSIS
     Dosage: 2 L;EVERY DAY;IP
     Route: 033
     Dates: start: 20040201, end: 20050501
  2. CLOPIDOGREL BISULFATE [Concomitant]
  3. NATRIUMHYDROGENCARBONAT [Concomitant]
  4. CALCIUM ACETATE [Concomitant]
  5. CRANOC [Concomitant]
  6. SIFROL [Concomitant]
  7. LISINOPRIL [Concomitant]
  8. FOLIC ACID [Concomitant]
  9. ARANESP [Concomitant]
  10. CYCLOSPORINE [Concomitant]
  11. METHYLPREDNISOLONE [Concomitant]
  12. CELLCEPT [Concomitant]
  13. PRAVASTATIN [Concomitant]
  14. NITRENDIPINE [Concomitant]
  15. RANITIDINE [Concomitant]
  16. CALCIUM GLUCONATE [Concomitant]
  17. COLECALCIFEROL [Concomitant]
  18. OXYBUTYNIN [Concomitant]
  19. AMPHOTERICIN B [Concomitant]
  20. MAGNESIUM [Concomitant]

REACTIONS (14)
  - ABDOMINAL INFECTION [None]
  - ASCITES [None]
  - C-REACTIVE PROTEIN INCREASED [None]
  - COMPLICATIONS OF TRANSPLANTED KIDNEY [None]
  - GENERAL PHYSICAL HEALTH DETERIORATION [None]
  - HYPOTENSION [None]
  - KIDNEY INFECTION [None]
  - MAGNESIUM DEFICIENCY [None]
  - PERITONEAL DISORDER [None]
  - PERITONITIS SCLEROSING [None]
  - RENAL LYMPHOCELE [None]
  - RENAL TRANSPLANT [None]
  - STAPHYLOCOCCAL INFECTION [None]
  - WEIGHT DECREASED [None]
